FAERS Safety Report 15573639 (Version 2)
Quarter: 2018Q4

REPORT INFORMATION
  Report Type: Other
  Country: ES (occurrence: ES)
  Receive Date: 20181101
  Receipt Date: 20181123
  Transmission Date: 20190205
  Serious: Yes (Hospitalization, Other)
  Sender: FDA-Public Use
  Company Number: ES-APOTEX-2018AP023247

PATIENT
  Age: 82 Year
  Sex: Female

DRUGS (7)
  1. PARACETAMOL [Concomitant]
     Active Substance: ACETAMINOPHEN
     Indication: FLANK PAIN
     Dosage: 1 G, TID
     Route: 048
     Dates: start: 20171125
  2. TRAMADOL. [Concomitant]
     Active Substance: TRAMADOL
     Indication: FLANK PAIN
     Dosage: 37.5 MG, TID
     Route: 048
     Dates: start: 20171125, end: 20171215
  3. XARELTO [Interacting]
     Active Substance: RIVAROXABAN
     Indication: ATRIAL FIBRILLATION
     Dosage: 20 MG, QD
     Route: 048
     Dates: start: 20160225, end: 20171215
  4. TRAMADOL HYDROCHLORIDE. [Suspect]
     Active Substance: TRAMADOL HYDROCHLORIDE
     Indication: FLANK PAIN
     Dosage: 100 MG, UNK
     Route: 042
     Dates: start: 20171214, end: 20171214
  5. SERTRALINE [Suspect]
     Active Substance: SERTRALINE HYDROCHLORIDE
     Indication: DEPRESSION
     Dosage: 100 MG, QD
     Route: 048
     Dates: start: 20161020, end: 20171215
  6. METAMIZOL                          /06276701/ [Concomitant]
     Active Substance: METAMIZOLE
     Indication: FLANK PAIN
     Dosage: 575 MG, QD
     Route: 048
     Dates: start: 20171129, end: 20171215
  7. METAMIZOL                          /06276701/ [Concomitant]
     Active Substance: METAMIZOLE
     Dosage: 2 G, QD
     Route: 042
     Dates: start: 20171214, end: 20171214

REACTIONS (3)
  - Syncope [Recovered/Resolved]
  - Nausea [Recovered/Resolved]
  - Retroperitoneal haematoma [Recovering/Resolving]

NARRATIVE: CASE EVENT DATE: 20171214
